FAERS Safety Report 21217428 (Version 1)
Quarter: 2022Q3

REPORT INFORMATION
  Report Type: Spontaneous
  Country: JP (occurrence: JP)
  Receive Date: 20220816
  Receipt Date: 20220816
  Transmission Date: 20221026
  Serious: Yes (Other)
  Sender: FDA-Public Use
  Company Number: JP-MYLANLABS-2022M1086153

PATIENT
  Sex: Female

DRUGS (18)
  1. CYCLOSPORINE [Suspect]
     Active Substance: CYCLOSPORINE
     Indication: Prophylaxis against graft versus host disease
     Route: 065
  2. TACROLIMUS [Suspect]
     Active Substance: TACROLIMUS
     Indication: Immunosuppressant drug therapy
     Dosage: TWO DAYS PRIOR TO KIDNEY TRANSPLANTATION: TROUGH CONCENTRATIONS OF 8 TO 12 NG/ML UNTIL 28 DAYS AFTER
     Route: 065
  3. TACROLIMUS [Suspect]
     Active Substance: TACROLIMUS
     Dosage: AFTER DAY 28 FROM KIDNEY TRANSPLANTATION: TROUGH CONCENTRATIONS OF 5 TO 8 NG/ML
     Route: 065
  4. MYCOPHENOLATE MOFETIL [Suspect]
     Active Substance: MYCOPHENOLATE MOFETIL
     Indication: Immunosuppressant drug therapy
     Dosage: 1000 MILLIGRAM, QD, 1000 MILLIGRAM, QD, TWO DAYS PRIOR KIDNEY TRANSPLANTATION
     Route: 065
  5. MYCOPHENOLATE MOFETIL [Suspect]
     Active Substance: MYCOPHENOLATE MOFETIL
     Dosage: 500 MILLIGRAM, QD
     Route: 065
  6. MYCOPHENOLATE MOFETIL [Suspect]
     Active Substance: MYCOPHENOLATE MOFETIL
     Dosage: 250 MILLIGRAM, QD
     Route: 065
  7. FLUDARABINE [Suspect]
     Active Substance: FLUDARABINE PHOSPHATE
     Indication: Bone marrow conditioning regimen
     Dosage: 25 MILLIGRAM/SQ. METER, FOR 5 DAYS
     Route: 065
  8. MELPHALAN [Suspect]
     Active Substance: MELPHALAN
     Indication: Bone marrow conditioning regimen
     Dosage: 70 MILLIGRAM/SQ. METER, FOR 2 DAYS
     Route: 065
  9. METHOTREXATE [Suspect]
     Active Substance: METHOTREXATE
     Indication: Prophylaxis against graft versus host disease
     Route: 065
  10. METHYLPREDNISOLONE [Suspect]
     Active Substance: METHYLPREDNISOLONE
     Indication: Immunosuppressant drug therapy
     Dosage: 8 MILLIGRAM, QD, TWO DAYS PRIOR KIDNEY TRANSPLANTATION
     Route: 065
  11. METHYLPREDNISOLONE [Suspect]
     Active Substance: METHYLPREDNISOLONE
     Dosage: 500 MILLIGRAM, QD, ON DAY OF KIDNEY TRANSPLANTATION
     Route: 065
  12. METHYLPREDNISOLONE [Suspect]
     Active Substance: METHYLPREDNISOLONE
     Dosage: 250 MILLIGRAM, QD, ON DAY 1 AFTER KIDNEY TRANSPLANTATION
     Route: 065
  13. METHYLPREDNISOLONE [Suspect]
     Active Substance: METHYLPREDNISOLONE
     Dosage: 125 MILLIGRAM, QD, ON DAY 2 AFTER KIDNEY TRANSPLANTATION
     Route: 065
  14. METHYLPREDNISOLONE [Suspect]
     Active Substance: METHYLPREDNISOLONE
     Dosage: 80 MILLIGRAM, QD, ON DAY 3 AFTER KIDNEY TRANSPLANTATION
     Route: 065
  15. METHYLPREDNISOLONE [Suspect]
     Active Substance: METHYLPREDNISOLONE
     Dosage: 60 MILLIGRAM, QD, AFTER DAY 4 OF KIDNEY TRANSPLANT
     Route: 065
  16. METHYLPREDNISOLONE [Suspect]
     Active Substance: METHYLPREDNISOLONE
     Dosage: 4 MILLIGRAM, QD
     Route: 065
  17. BASILIXIMAB [Suspect]
     Active Substance: BASILIXIMAB
     Indication: Immunosuppressant drug therapy
     Dosage: 20 MILLIGRAM, QD, ON THE DAY OF KIDNEY TRANSPLANTATION
     Route: 065
  18. BASILIXIMAB [Suspect]
     Active Substance: BASILIXIMAB
     Dosage: 20 MILLIGRAM, QD, ON DAY 4 AFTER KIDNEY TRANSPLANTATION
     Route: 065

REACTIONS (6)
  - Cardiomyopathy [Recovering/Resolving]
  - Renal impairment [Recovering/Resolving]
  - Chronic kidney disease [Recovering/Resolving]
  - Urinary tract infection [Recovering/Resolving]
  - Cytomegalovirus infection [Recovered/Resolved]
  - Cardiac failure [Recovering/Resolving]
